FAERS Safety Report 19165206 (Version 2)
Quarter: 2021Q2

REPORT INFORMATION
  Report Type: Spontaneous
  Country: US (occurrence: US)
  Receive Date: 20210421
  Receipt Date: 20210630
  Transmission Date: 20210717
  Serious: Yes (Disabling)
  Sender: FDA-Public Use
  Company Number: US-AMERICAN REGENT INC-2021000967

PATIENT
  Age: 41 Year
  Sex: Female
  Weight: 103 kg

DRUGS (4)
  1. INJECTAFER [Suspect]
     Active Substance: FERRIC CARBOXYMALTOSE
     Indication: IRON DEFICIENCY ANAEMIA
     Dosage: 750 MILLIGRAM, SINGLE DILUTED IN 100 ML OF NS
     Route: 042
     Dates: start: 20190430, end: 20190430
  2. INJECTAFER [Suspect]
     Active Substance: FERRIC CARBOXYMALTOSE
     Dosage: 750 MILLIGRAM, SINGLE DILUTED IN 100 ML OF NS
     Route: 042
     Dates: start: 20190513, end: 20190513
  3. SYNTHROID [Concomitant]
     Active Substance: LEVOTHYROXINE SODIUM
     Indication: PRODUCT USED FOR UNKNOWN INDICATION
     Dosage: 1.75 MICROGRAM, QD
     Route: 048
  4. PROGESTERONE. [Concomitant]
     Active Substance: PROGESTERONE
     Indication: PRODUCT USED FOR UNKNOWN INDICATION
     Dosage: 100 MILLIGRAM, QD
     Route: 048

REACTIONS (15)
  - Anxiety [Not Recovered/Not Resolved]
  - Malaise [Not Recovered/Not Resolved]
  - Hyperhidrosis [Not Recovered/Not Resolved]
  - Dyspnoea [Not Recovered/Not Resolved]
  - Tachycardia [Not Recovered/Not Resolved]
  - Dizziness [Not Recovered/Not Resolved]
  - Product quality issue [Unknown]
  - Palpitations [Not Recovered/Not Resolved]
  - Pain [Not Recovered/Not Resolved]
  - Nausea [Not Recovered/Not Resolved]
  - Hypophosphataemia [Recovering/Resolving]
  - Anhedonia [Not Recovered/Not Resolved]
  - Emotional distress [Not Recovered/Not Resolved]
  - Arrhythmia [Not Recovered/Not Resolved]
  - Chills [Not Recovered/Not Resolved]

NARRATIVE: CASE EVENT DATE: 201905
